FAERS Safety Report 12250315 (Version 2)
Quarter: 2016Q2

REPORT INFORMATION
  Report Type: Spontaneous
  Country: US (occurrence: US)
  Receive Date: 20160408
  Receipt Date: 20160623
  Transmission Date: 20160815
  Serious: Yes (Hospitalization, Other)
  Sender: FDA-Public Use
  Company Number: US-009507513-1603USA014193

PATIENT
  Sex: Female

DRUGS (1)
  1. ALENDRONATE SODIUM / CHOLCALCIFEROL TABLETS [Suspect]
     Active Substance: ALENDRONATE SODIUM\CHOLECALCIFEROL
     Dosage: 35 MG, UNK
     Route: 048

REACTIONS (2)
  - Knee arthroplasty [Unknown]
  - Adverse event [Unknown]
